FAERS Safety Report 18570701 (Version 1)
Quarter: 2020Q4

REPORT INFORMATION
  Report Type: Report from Study
  Country: ES (occurrence: ES)
  Receive Date: 20201202
  Receipt Date: 20201202
  Transmission Date: 20210114
  Serious: Yes (Hospitalization)
  Sender: FDA-Public Use
  Company Number: ES-GW PHARMA-201806ESGW0169

PATIENT

DRUGS (6)
  1. STESOLID [Concomitant]
     Active Substance: DIAZEPAM
     Dosage: 10 MILLIGRAM, QD
     Route: 054
     Dates: start: 20180516, end: 20180516
  2. STESOLID [Concomitant]
     Active Substance: DIAZEPAM
     Dosage: 10 MILLIGRAM, QD
     Route: 054
     Dates: start: 20180521, end: 20180521
  3. EPIDIOLEX [Suspect]
     Active Substance: CANNABIDIOL
     Indication: EPILEPSY
     Dosage: 1.8 MG/KG, 142 MILLIGRAM, QD
     Route: 002
     Dates: start: 20171025, end: 20180526
  4. RUFINAMIDE [Concomitant]
     Active Substance: RUFINAMIDE
     Indication: EPILEPSY
     Dosage: 400 MG TID + 200 MG BID
     Route: 048
     Dates: start: 20180518
  5. STESOLID [Concomitant]
     Active Substance: DIAZEPAM
     Indication: EPILEPSY
     Dosage: 10 MILLIGRAM, QD
     Route: 054
     Dates: start: 20180510, end: 20180510
  6. STESOLID [Concomitant]
     Active Substance: DIAZEPAM
     Dosage: 10 MILLIGRAM, QD
     Route: 054
     Dates: start: 20180517, end: 20180517

REACTIONS (1)
  - Status epilepticus [Recovered/Resolved]

NARRATIVE: CASE EVENT DATE: 20180527
